FAERS Safety Report 11060814 (Version 1)
Quarter: 2015Q2

REPORT INFORMATION
  Report Type: Spontaneous
  Country: US (occurrence: US)
  Receive Date: 20150423
  Receipt Date: 20150423
  Transmission Date: 20150821
  Serious: Yes (Hospitalization)
  Sender: FDA-Public Use
  Company Number: US-ASTRAZENECA-2015SE36369

PATIENT
  Age: 61 Year
  Sex: Female

DRUGS (6)
  1. LYNPARZA [Suspect]
     Active Substance: OLAPARIB
     Indication: BRCA1 GENE MUTATION
     Route: 048
     Dates: start: 2015
  2. LYNPARZA [Suspect]
     Active Substance: OLAPARIB
     Indication: OVARIAN CANCER
     Route: 048
     Dates: start: 2015
  3. PROLIA [Concomitant]
     Active Substance: DENOSUMAB
  4. CALCIUM [Concomitant]
     Active Substance: CALCIUM
  5. WELBUTRIN SR [Concomitant]
  6. CETIRIZE HCL [Concomitant]

REACTIONS (1)
  - Haemoglobin decreased [Unknown]
